FAERS Safety Report 9680705 (Version 2)
Quarter: 2013Q4

REPORT INFORMATION
  Report Type: Spontaneous
  Country: RO (occurrence: RO)
  Receive Date: 20131111
  Receipt Date: 20131120
  Transmission Date: 20140711
  Serious: Yes (Hospitalization, Other)
  Sender: FDA-Public Use
  Company Number: RO-JNJFOC-20131101495

PATIENT
  Age: 41 Year
  Sex: Male
  Weight: 60 kg

DRUGS (4)
  1. REMICADE [Suspect]
     Indication: PSORIATIC ARTHROPATHY
     Dosage: APPROXIMATE TOTAL NUMBER OF INFUSIONS:37
     Route: 042
     Dates: start: 20080521, end: 20130709
  2. FOLIC ACID [Concomitant]
     Indication: ANAEMIA PROPHYLAXIS
     Route: 065
     Dates: start: 201111
  3. METHOTREXATE [Concomitant]
     Indication: PSORIATIC ARTHROPATHY
     Route: 030
     Dates: start: 201111
  4. MOVALIS [Concomitant]
     Indication: PSORIATIC ARTHROPATHY
     Route: 065

REACTIONS (3)
  - Mycobacterium tuberculosis complex test positive [Unknown]
  - Tuberculous pleurisy [Not Recovered/Not Resolved]
  - Pulmonary tuberculosis [Not Recovered/Not Resolved]
